FAERS Safety Report 5704998-0 (Version None)
Quarter: 2008Q2

REPORT INFORMATION
  Report Type: 
  Country: None (occurrence: None)
  Receive Date: 20080414
  Receipt Date: 20080402
  Transmission Date: 20081010
  Serious: Yes (Other)
  Sender: FDA-Public Use
  Company Number: US-BOEHRINGER INGELHEIM GMBH, GERMANY-2008-DE-01977GD

PATIENT

DRUGS (3)
  1. NEVIRAPINE [Suspect]
     Indication: HIV INFECTION
  2. ZIAGEN [Suspect]
     Indication: HIV INFECTION
     Route: 048
  3. EPIVIR [Concomitant]
     Indication: HIV INFECTION

REACTIONS (2)
  - DRUG HYPERSENSITIVITY [None]
  - DRUG INTERACTION [None]
